FAERS Safety Report 5094214-8 (Version None)
Quarter: 2006Q3

REPORT INFORMATION
  Report Type: 
  Country: None (occurrence: None)
  Receive Date: 20060830
  Receipt Date: 20060830
  Transmission Date: 20061208
  Serious: Yes (Other)
  Sender: FDA-Public Use
  Company Number: None

PATIENT
  Age: 9 Year
  Sex: Male
  Weight: 47.1741 kg

DRUGS (2)
  1. GEODON [Suspect]
     Indication: CYCLOTHYMIC DISORDER
     Dosage: 1-BID PO
     Route: 048
     Dates: start: 20060821, end: 20060825
  2. RISPERDAL [Concomitant]

REACTIONS (4)
  - COUGH [None]
  - DIARRHOEA [None]
  - RASH PRURITIC [None]
  - RHINORRHOEA [None]
